FAERS Safety Report 10053626 (Version 1)
Quarter: 2014Q2

REPORT INFORMATION
  Report Type: Spontaneous
  Country: US (occurrence: US)
  Receive Date: 20140402
  Receipt Date: 20140402
  Transmission Date: 20141212
  Serious: No
  Sender: FDA-Public Use
  Company Number: US-PFIZER INC-2014090403

PATIENT
  Age: 66 Year
  Sex: Female
  Weight: 63.49 kg

DRUGS (4)
  1. ALAVERT D-12 HOUR ALLERGY + SINUS [Suspect]
     Indication: DIZZINESS
     Dosage: 120 MG, AS NEEDED
     Dates: start: 20140327
  2. ALAVERT D-12 HOUR ALLERGY + SINUS [Suspect]
     Indication: SINUS CONGESTION
  3. WELLBUTRIN [Concomitant]
     Indication: SLEEP DISORDER
     Dosage: UNK
  4. WELLBUTRIN [Concomitant]
     Indication: DEPRESSION

REACTIONS (1)
  - Feeling abnormal [Unknown]
